FAERS Safety Report 26070856 (Version 1)
Quarter: 2025Q4

REPORT INFORMATION
  Report Type: Spontaneous
  Country: US (occurrence: US)
  Receive Date: 20251120
  Receipt Date: 20251120
  Transmission Date: 20260118
  Serious: No
  Sender: INSUD PHARMA
  Company Number: US-INSUD PHARMA-2511US09294

PATIENT

DRUGS (4)
  1. PROGESTERONE [Suspect]
     Active Substance: PROGESTERONE
     Indication: Hormone therapy
     Dosage: 1 CAPSULE DAILY
     Route: 065
     Dates: start: 202505, end: 202508
  2. PROGESTERONE [Suspect]
     Active Substance: PROGESTERONE
     Dosage: 1 CAPSULE DAILY
     Route: 065
     Dates: start: 202508
  3. NP THYROID [Concomitant]
     Active Substance: LEVOTHYROXINE\LIOTHYRONINE
     Indication: Product used for unknown indication
     Dosage: 30 MILLIGRAM, DAILY
     Route: 065
  4. ESTROGENS [Concomitant]
     Active Substance: ESTROGENS
     Indication: Product used for unknown indication
     Dosage: 0.0375 MILLIGRAM
     Route: 062

REACTIONS (9)
  - Brain fog [Recovered/Resolved]
  - Dizziness [Recovered/Resolved]
  - Abdominal distension [Recovered/Resolved]
  - Balance disorder [Recovering/Resolving]
  - Urine odour abnormal [Recovered/Resolved]
  - Vaginal haemorrhage [Unknown]
  - Intentional dose omission [Unknown]
  - Product quality issue [Unknown]
  - Product use in unapproved indication [Unknown]

NARRATIVE: CASE EVENT DATE: 20250101
